FAERS Safety Report 9322136 (Version 1)
Quarter: 2013Q2

REPORT INFORMATION
  Report Type: Spontaneous
  Country: US (occurrence: None)
  Receive Date: 20130530
  Receipt Date: 20130530
  Transmission Date: 20140414
  Serious: No
  Sender: FDA-Public Use
  Company Number: None

PATIENT
  Age: 35 Year
  Sex: Male
  Weight: 91.7 kg

DRUGS (2)
  1. OSELTAMIVIR [Suspect]
     Indication: UPPER RESPIRATORY TRACT INFECTION
     Dosage: 75 MG BID PO
     Route: 048
     Dates: start: 20130209, end: 20130213
  2. AZITHROMYCIN [Suspect]
     Indication: UPPER RESPIRATORY TRACT INFECTION
     Dosage: 500 MG EVERY DAY PO
     Route: 048
     Dates: start: 20130208, end: 20130212

REACTIONS (1)
  - Stevens-Johnson syndrome [None]
